FAERS Safety Report 5523954-9 (Version None)
Quarter: 2007Q4

REPORT INFORMATION
  Report Type: 
  Country: None (occurrence: None)
  Receive Date: 20071121
  Receipt Date: 20071112
  Transmission Date: 20080405
  Serious: Yes (Hospitalization, Other)
  Sender: FDA-Public Use
  Company Number: JP-ABBOTT-07P-087-0423193-00

PATIENT
  Sex: Female
  Weight: 11 kg

DRUGS (1)
  1. CEFZON [Suspect]
     Indication: CELLULITIS
     Route: 048
     Dates: start: 20071022, end: 20071022

REACTIONS (7)
  - ABSCESS LIMB [None]
  - CELLULITIS [None]
  - ERYTHEMA [None]
  - PHARYNGOTONSILLITIS [None]
  - PYREXIA [None]
  - TONSILLAR DISORDER [None]
  - TONSILLAR INFLAMMATION [None]
